FAERS Safety Report 23160053 (Version 1)
Quarter: 2023Q4

REPORT INFORMATION
  Report Type: Spontaneous
  Country: SE (occurrence: SE)
  Receive Date: 20231108
  Receipt Date: 20231108
  Transmission Date: 20240110
  Serious: Yes (Hospitalization)
  Sender: FDA-Public Use
  Company Number: None

PATIENT
  Age: 23 Year
  Sex: Female

DRUGS (1)
  1. PROMETHAZINE HYDROCHLORIDE\THIOUREA [Suspect]
     Active Substance: PROMETHAZINE HYDROCHLORIDE\THIOUREA
     Indication: Product used for unknown indication
     Dosage: 1.25 GRAM, 1 TOTAL
     Route: 065
     Dates: start: 20231016, end: 20231016

REACTIONS (8)
  - Restlessness [Recovering/Resolving]
  - Akathisia [Recovering/Resolving]
  - Suicidal ideation [Recovering/Resolving]
  - Hallucination [Recovering/Resolving]
  - Toxicity to various agents [Recovering/Resolving]
  - Anxiety [Recovering/Resolving]
  - Confusional state [Recovering/Resolving]
  - Urinary retention [Recovering/Resolving]

NARRATIVE: CASE EVENT DATE: 20231016
